FAERS Safety Report 7202023-6 (Version None)
Quarter: 2010Q4

REPORT INFORMATION
  Report Type: 
  Country: None (occurrence: None)
  Receive Date: 20101229
  Receipt Date: 20101220
  Transmission Date: 20110411
  Serious: Yes (Other)
  Sender: FDA-Public Use
  Company Number: SE-JNJFOC-20101207098

PATIENT
  Age: 20 Year
  Sex: Female

DRUGS (3)
  1. CONCERTA [Suspect]
     Indication: AUTISM
  2. CONCERTA [Suspect]
     Indication: PSYCHOMOTOR HYPERACTIVITY
  3. DIAZEPAM [Concomitant]

REACTIONS (8)
  - ANGER [None]
  - COUGH [None]
  - IRRITABILITY [None]
  - LIP SWELLING [None]
  - MANIA [None]
  - MUSCLE TWITCHING [None]
  - SWELLING FACE [None]
  - TIC [None]
